FAERS Safety Report 20107197 (Version 1)
Quarter: 2021Q4

REPORT INFORMATION
  Report Type: Spontaneous
  Country: US (occurrence: None)
  Receive Date: 20211123
  Receipt Date: 20211123
  Transmission Date: 20220304
  Serious: No
  Sender: FDA-Public Use
  Company Number: None

PATIENT

DRUGS (2)
  1. CALCIUM CHLORIDE [Suspect]
     Active Substance: CALCIUM CHLORIDE
     Dosage: OTHER STRENGTH : 1000 MG/10 ML ;?
  2. HEPARIN LOCK FLUSH [Suspect]
     Active Substance: HEPARIN SODIUM
     Dosage: OTHER STRENGTH : 500 USP UNITS/5 ML;?

REACTIONS (2)
  - Intercepted product selection error [None]
  - Product packaging confusion [None]
